FAERS Safety Report 9868106 (Version 3)
Quarter: 2014Q1

REPORT INFORMATION
  Report Type: Spontaneous
  Country: JP (occurrence: JP)
  Receive Date: 20140204
  Receipt Date: 20140219
  Transmission Date: 20141002
  Serious: Yes (Hospitalization)
  Sender: FDA-Public Use
  Company Number: JP-GLAXOSMITHKLINE-B0959414A

PATIENT
  Age: 84 Year
  Sex: Male

DRUGS (10)
  1. LAMICTAL [Suspect]
     Indication: EPILEPSY
     Dosage: 25MG PER DAY
     Route: 048
     Dates: start: 20120820, end: 20131226
  2. LAMICTAL [Suspect]
     Indication: EPILEPSY
     Dosage: 25MG ALTERNATE DAYS
     Route: 048
     Dates: start: 20131227, end: 20140101
  3. AMINOLEBAN EN [Concomitant]
     Dosage: 1IUAX PER DAY
     Route: 048
  4. LIVACT [Concomitant]
     Dosage: 4.15G THREE TIMES PER DAY
     Route: 048
  5. TAKEPRON [Concomitant]
     Dosage: 30MG PER DAY
     Route: 048
  6. AMLODIN OD [Concomitant]
     Dosage: 2.5MG PER DAY
     Route: 048
  7. DEPAKENE [Concomitant]
     Dosage: 3ML TWICE PER DAY
     Route: 048
  8. SENNOSIDE [Concomitant]
     Dosage: 24MG PER DAY
     Route: 048
  9. MAGNESIUM OXIDE [Concomitant]
     Dosage: 330MG TWICE PER DAY
     Route: 048
  10. PROMAC [Concomitant]
     Dosage: 75MG TWICE PER DAY
     Route: 048

REACTIONS (2)
  - Pneumonia aspiration [Recovering/Resolving]
  - Pyrexia [Recovered/Resolved]
